FAERS Safety Report 21123684 (Version 1)
Quarter: 2022Q3

REPORT INFORMATION
  Report Type: Report from Study
  Country: AU (occurrence: AU)
  Receive Date: 20220725
  Receipt Date: 20220725
  Transmission Date: 20221027
  Serious: Yes (Hospitalization)
  Sender: FDA-Public Use
  Company Number: AU-SUN PHARMACEUTICAL INDUSTRIES LTD-2022R1-345530

PATIENT
  Sex: Male
  Weight: 132 kg

DRUGS (8)
  1. PLACEBO [Suspect]
     Active Substance: UNSPECIFIED INGREDIENT
     Indication: Nail psoriasis
     Dosage: 100 MILLIGRAM (WEEK 16 DOSE ADMINISTERED)
     Route: 058
     Dates: start: 20220311, end: 20220708
  2. TILDRAKIZUMAB [Suspect]
     Active Substance: TILDRAKIZUMAB
     Indication: Nail psoriasis
     Dosage: 100 MILLIGRAM (WEEK 16 DOSE ADMINISTERED)
     Route: 058
     Dates: start: 20220311, end: 20220708
  3. AMOXICILLIN\CLAVULANATE POTASSIUM [Concomitant]
     Active Substance: AMOXICILLIN\CLAVULANATE POTASSIUM
     Indication: Tooth abscess
     Dosage: 875/12.5 MILLIGRAM
     Route: 048
     Dates: start: 20220622, end: 20220627
  4. astrazeneca [Concomitant]
     Indication: COVID-19
     Dosage: 0.5 MILLILITER
     Route: 058
     Dates: start: 20210504
  5. ATACAND [Concomitant]
     Active Substance: CANDESARTAN CILEXETIL
     Indication: Hypertension
     Dosage: 8 MILLIGRAM, QD
     Route: 048
     Dates: start: 2010
  6. CRESTOR [Concomitant]
     Active Substance: ROSUVASTATIN CALCIUM
     Indication: Hyperlipidaemia
     Dosage: 10 MILLIGRAM, BID
     Route: 048
     Dates: start: 2010
  7. ELIQUIS [Concomitant]
     Active Substance: APIXABAN
     Indication: Atrial fibrillation
     Dosage: 5 MILLIGRAM, BID
     Route: 048
     Dates: start: 2010
  8. OTEZLA [Concomitant]
     Active Substance: APREMILAST
     Indication: Psoriasis
     Dosage: 30 MILLIGRAM, BID
     Route: 048
     Dates: start: 2021, end: 20211213

REACTIONS (1)
  - Influenza [Unknown]

NARRATIVE: CASE EVENT DATE: 20220704
